FAERS Safety Report 11741303 (Version 1)
Quarter: 2015Q4

REPORT INFORMATION
  Report Type: Spontaneous
  Country: PH (occurrence: PH)
  Receive Date: 20151116
  Receipt Date: 20151116
  Transmission Date: 20160304
  Serious: Yes (Hospitalization)
  Sender: FDA-Public Use
  Company Number: PH-009507513-1511PHL007021

PATIENT
  Age: 54 Year
  Sex: Female

DRUGS (6)
  1. JANUMET [Suspect]
     Active Substance: METFORMIN HYDROCHLORIDE\SITAGLIPTIN PHOSPHATE
     Indication: DIABETES MELLITUS
     Dosage: 1 TABLET(50/1000MG), BID
     Route: 048
     Dates: start: 2014
  2. ALZOR CCB [Concomitant]
     Dosage: UNK, QD
  3. INSULIN [Concomitant]
     Active Substance: INSULIN NOS
     Dosage: 30 UNITS, DAILY IN THE MORNING
  4. CRESTOR [Concomitant]
     Active Substance: ROSUVASTATIN CALCIUM
     Dosage: UNK, QD
  5. INSULIN [Concomitant]
     Active Substance: INSULIN NOS
     Dosage: 30 UNITS, DAILY IN THE EVENING
  6. INSULIN RAPID [Concomitant]
     Active Substance: INSULIN NOS
     Dosage: 15 UNITS, DAILY AFTER LUNCH

REACTIONS (2)
  - Blood potassium decreased [Recovered/Resolved]
  - Hypoglycaemia [Recovered/Resolved]

NARRATIVE: CASE EVENT DATE: 20151014
